FAERS Safety Report 7352353-2 (Version None)
Quarter: 2011Q1

REPORT INFORMATION
  Report Type: 
  Country: None (occurrence: None)
  Receive Date: 20110309
  Receipt Date: 20110309
  Transmission Date: 20110831
  Serious: Yes (Life-Threatening)
  Sender: FDA-Public Use
  Company Number: None

PATIENT
  Sex: Female
  Weight: 58.3 kg

DRUGS (1)
  1. EMEND [Suspect]
     Indication: PROPHYLAXIS OF NAUSEA AND VOMITING
     Dosage: 150 MG ONCE IV DRIP
     Route: 041
     Dates: start: 20110228, end: 20110228

REACTIONS (4)
  - FLUSHING [None]
  - BACK PAIN [None]
  - CHEST DISCOMFORT [None]
  - FEELING HOT [None]
